FAERS Safety Report 8313290-X (Version None)
Quarter: 2012Q2

REPORT INFORMATION
  Report Type: 
  Country: None (occurrence: None)
  Receive Date: 20120425
  Receipt Date: 20120425
  Transmission Date: 20120825
  Serious: Yes (Life-Threatening, Hospitalization, Disabling)
  Sender: FDA-Public Use
  Company Number: None

PATIENT
  Sex: Male
  Weight: 74.8435 kg

DRUGS (3)
  1. ZETIA [Suspect]
     Indication: CORONARY ARTERIAL STENT INSERTION
     Dosage: DO NOT RECALL
     Dates: start: 20050101, end: 20120101
  2. LOVASTATIN [Suspect]
     Dates: start: 20110101, end: 20120101
  3. CRESTOR [Suspect]
     Indication: CORONARY ARTERIAL STENT INSERTION
     Dosage: DO NOT RECALL
     Dates: start: 20050101, end: 20120101

REACTIONS (1)
  - PANCREATIC CARCINOMA [None]
